FAERS Safety Report 10019803 (Version 1)
Quarter: 2014Q1

REPORT INFORMATION
  Report Type: Spontaneous
  Country: US (occurrence: US)
  Receive Date: 20140318
  Receipt Date: 20140318
  Transmission Date: 20141002
  Serious: No
  Sender: FDA-Public Use
  Company Number: US-GALDERMA-US13004097

PATIENT
  Age: 36 Year
  Sex: Male

DRUGS (4)
  1. MIRVASO (BRIMONIDINE) TOPICAL GEL, 0.33% [Suspect]
     Indication: ROSACEA
     Dosage: 0.33%
     Route: 061
     Dates: start: 20131102, end: 20131206
  2. VALIUM (DIAZEPAM) [Concomitant]
  3. MECLIZINE [Concomitant]
  4. TRIAMTERENE WITH HCTZ (HYDROCHLOROTHIAZIDE) [Concomitant]

REACTIONS (4)
  - Rebound effect [Unknown]
  - Condition aggravated [Unknown]
  - Erythema [Unknown]
  - Drug effect decreased [Unknown]
